FAERS Safety Report 18382535 (Version 1)
Quarter: 2020Q4

REPORT INFORMATION
  Report Type: Spontaneous
  Country: US (occurrence: US)
  Receive Date: 20201008
  Receipt Date: 20201008
  Transmission Date: 20210114
  Serious: Yes (Other)
  Sender: FDA-Public Use
  Company Number: None

PATIENT
  Age: 79 Year
  Sex: Female
  Weight: 90.7 kg

DRUGS (4)
  1. BALANCED SALT SOLUTION [Concomitant]
     Active Substance: CALCIUM CHLORIDE\MAGNESIUM CHLORIDE\POTASSIUM CHLORIDE\SODIUM ACETATE\SODIUM CHLORIDE\SODIUM CITRATE
     Dates: start: 20200921, end: 20200921
  2. DEXAMETHASONE (1MG/ML)- MOXIFLOXACIN (5 MG/ML) SOLUTION [Suspect]
     Active Substance: DEXAMETHASONE SODIUM PHOSPHATE\MOXIFLOXACIN HYDROCHLORIDE
     Indication: INTRAOCULAR LENS IMPLANT
     Dosage: ?          OTHER FREQUENCY:ONCE;?
     Route: 031
     Dates: start: 20200921, end: 20200921
  3. DEXAMETHASONE (1MG/ML)- MOXIFLOXACIN (5 MG/ML) SOLUTION [Suspect]
     Active Substance: DEXAMETHASONE SODIUM PHOSPHATE\MOXIFLOXACIN HYDROCHLORIDE
     Indication: CATARACT OPERATION
     Dosage: ?          OTHER FREQUENCY:ONCE;?
     Route: 031
     Dates: start: 20200921, end: 20200921
  4. EPINEPHRINE/LIDOCAINE/BALANCED SALT SOLUTION [Concomitant]
     Dates: start: 20200921, end: 20200921

REACTIONS (5)
  - Vision blurred [None]
  - Corneal oedema [None]
  - Pupils unequal [None]
  - Visual impairment [None]
  - Toxicity to various agents [None]

NARRATIVE: CASE EVENT DATE: 20200921
